FAERS Safety Report 4692232-2 (Version None)
Quarter: 2005Q2

REPORT INFORMATION
  Report Type: 
  Country: None (occurrence: None)
  Receive Date: 20050614
  Receipt Date: 20050601
  Transmission Date: 20051028
  Serious: Yes (Disabling)
  Sender: FDA-Public Use
  Company Number: OMPQ-PR-0506S-0859

PATIENT
  Age: 67 Year
  Sex: Male
  Weight: 80 kg

DRUGS (1)
  1. OMNIPAQUE 140 [Suspect]
     Indication: BLADDER CANCER
     Dosage: 100 ML, SINGLE DOSE, I.V.
     Route: 042
     Dates: start: 20030101, end: 20030101

REACTIONS (5)
  - DYSSTASIA [None]
  - FALL [None]
  - MALAISE [None]
  - MYELITIS TRANSVERSE [None]
  - PARAPLEGIA [None]
